FAERS Safety Report 8997027 (Version 1)
Quarter: 2013Q1

REPORT INFORMATION
  Report Type: Spontaneous
  Country: US (occurrence: US)
  Receive Date: 20130104
  Receipt Date: 20130104
  Transmission Date: 20140127
  Serious: No
  Sender: FDA-Public Use
  Company Number: US-TARO-2012P1002969

PATIENT
  Age: 55 Year
  Sex: Male
  Weight: 89.81 kg

DRUGS (3)
  1. HYDROCORTISONE [Suspect]
     Indication: HAEMORRHOIDS
     Route: 061
     Dates: start: 201112, end: 201112
  2. HYDROCORTISONE [Suspect]
     Indication: HAEMORRHOIDS
     Route: 061
     Dates: start: 201112
  3. METFORMIN [Concomitant]

REACTIONS (1)
  - Drug ineffective [Recovered/Resolved]
